FAERS Safety Report 7399411-4 (Version None)
Quarter: 2011Q1

REPORT INFORMATION
  Report Type: 
  Country: None (occurrence: None)
  Receive Date: 20110329
  Receipt Date: 20110321
  Transmission Date: 20110831
  Serious: Yes (Hospitalization)
  Sender: FDA-Public Use
  Company Number: UTC-005819

PATIENT
  Age: 53 Year
  Sex: Female
  Weight: 55 kg

DRUGS (4)
  1. DIURETICS [Concomitant]
  2. ADCIRCA [Concomitant]
  3. TRACELLER (BOSENTAN) [Concomitant]
  4. REMODULIN [Suspect]
     Indication: PULMONARY HYPERTENSION
     Dosage: 73.44 UG/KG (0.051 UG/KG, 1 IN 1 MIN) INTRAVENOUS
     Route: 042
     Dates: start: 20101230

REACTIONS (4)
  - DYSPNOEA [None]
  - NAUSEA [None]
  - VOMITING [None]
  - SEPSIS [None]
